FAERS Safety Report 4715830-6 (Version None)
Quarter: 2005Q3

REPORT INFORMATION
  Report Type: 
  Country: None (occurrence: None)
  Receive Date: 20050718
  Receipt Date: 20050404
  Transmission Date: 20060218
  Serious: Yes (Hospitalization)
  Sender: FDA-Public Use
  Company Number: 2005AP02079

PATIENT
  Age: 25493 Day
  Sex: Male

DRUGS (5)
  1. IRESSA [Suspect]
     Indication: COLORECTAL CANCER
     Route: 048
     Dates: start: 20050214
  2. CAPECITABINE [Suspect]
     Indication: COLORECTAL CANCER
     Route: 048
     Dates: start: 20050214
  3. BIFONAZOLE [Concomitant]
     Indication: BALANITIS
     Route: 061
     Dates: start: 20050307
  4. DILTIAZEM [Concomitant]
     Indication: HYPERTENSION
     Route: 048
     Dates: start: 20050304
  5. ASPIRIN [Concomitant]
     Indication: PROPHYLAXIS
     Route: 048
     Dates: start: 20050304

REACTIONS (9)
  - BALANITIS [None]
  - COUGH [None]
  - DIARRHOEA [None]
  - ERYTHEMA [None]
  - NEUROTOXICITY [None]
  - PYREXIA [None]
  - SKIN INFECTION [None]
  - SKIN TOXICITY [None]
  - STOMATITIS [None]
